FAERS Safety Report 9785378 (Version 2)
Quarter: 2014Q1

REPORT INFORMATION
  Report Type: Spontaneous
  Country: US (occurrence: US)
  Receive Date: 20131227
  Receipt Date: 20140205
  Transmission Date: 20141002
  Serious: No
  Sender: FDA-Public Use
  Company Number: US-009507513-1312USA008246

PATIENT
  Age: 9 Year
  Sex: Female
  Weight: 45.81 kg

DRUGS (4)
  1. ASMANEX TWISTHALER [Suspect]
     Indication: ASTHMA
     Dosage: 1 PUFF, BID. STANDAR DOSE OF 30
     Route: 055
     Dates: start: 2013
  2. ASMANEX TWISTHALER [Suspect]
     Dosage: 1 PUFF, QD. STANDAR DOSE OF 30
     Route: 055
     Dates: start: 201310, end: 2013
  3. NASONEX [Concomitant]
  4. ZYRTEC [Concomitant]

REACTIONS (4)
  - Underdose [Unknown]
  - Drug ineffective [Unknown]
  - Product quality issue [Unknown]
  - Overdose [Unknown]
